FAERS Safety Report 7469646-0 (Version None)
Quarter: 2011Q2

REPORT INFORMATION
  Report Type: 
  Country: None (occurrence: None)
  Receive Date: 20110429
  Receipt Date: 20110415
  Transmission Date: 20111010
  Serious: Yes (Other)
  Sender: FDA-Public Use
  Company Number: 2011MA004312

PATIENT

DRUGS (1)
  1. METOCLOPRAMIDE [Suspect]

REACTIONS (4)
  - TARDIVE DYSKINESIA [None]
  - EMOTIONAL DISORDER [None]
  - ECONOMIC PROBLEM [None]
  - TREMOR [None]
